FAERS Safety Report 9438380 (Version 1)
Quarter: 2013Q3

REPORT INFORMATION
  Report Type: Spontaneous
  Country: US (occurrence: None)
  Receive Date: 20130802
  Receipt Date: 20130802
  Transmission Date: 20140515
  Serious: Yes (Life-Threatening, Hospitalization)
  Sender: FDA-Public Use
  Company Number: None

PATIENT
  Age: 55 Year
  Sex: Male
  Weight: 88.5 kg

DRUGS (2)
  1. COMBIVIR [Suspect]
     Indication: HIV INFECTION
     Dosage: 1 TABLET BID PO
     Route: 048
  2. METFORMIN [Suspect]
     Indication: DIABETES MELLITUS
     Dosage: 1 TABLET BID PO
     Route: 048

REACTIONS (8)
  - Dyspnoea [None]
  - Bradycardia [None]
  - Hypotension [None]
  - Ischaemic hepatitis [None]
  - Respiratory distress [None]
  - Hyperkalaemia [None]
  - Renal failure [None]
  - Cardiac disorder [None]
